FAERS Safety Report 7821392-7 (Version None)
Quarter: 2011Q4

REPORT INFORMATION
  Report Type: 
  Country: None (occurrence: None)
  Receive Date: 20111018
  Receipt Date: 20111011
  Transmission Date: 20120403
  Serious: Yes (Hospitalization)
  Sender: FDA-Public Use
  Company Number: DE-BAYER-2011-097744

PATIENT
  Age: 74 Year
  Sex: Male

DRUGS (1)
  1. AVELOX [Suspect]
     Indication: ULCER
     Dosage: UNK
     Route: 042
     Dates: start: 20110408

REACTIONS (2)
  - PERIPHERAL ARTERIAL OCCLUSIVE DISEASE [None]
  - OSTEOMYELITIS [None]
